FAERS Safety Report 12338616 (Version 2)
Quarter: 2016Q2

REPORT INFORMATION
  Report Type: Report from Study
  Country: BE (occurrence: BE)
  Receive Date: 20160505
  Receipt Date: 20160525
  Transmission Date: 20160815
  Serious: Yes (Hospitalization, Other)
  Sender: FDA-Public Use
  Company Number: BE-GLAXOSMITHKLINE-BE2016GSK062978

PATIENT
  Sex: Female
  Weight: 67.1 kg

DRUGS (19)
  1. EPIVIR [Concomitant]
     Active Substance: LAMIVUDINE
     Indication: HIV INFECTION
     Dosage: 300 MG, 1D
     Dates: start: 20111028
  2. EPIVIR [Concomitant]
     Active Substance: LAMIVUDINE
     Dosage: 80 UNK, UNK
  3. HUMALOG [Concomitant]
     Active Substance: INSULIN LISPRO
     Dosage: 10 DF, EVENING
  4. ATENOLOL. [Concomitant]
     Active Substance: ATENOLOL
  5. PANTOMED [Concomitant]
     Active Substance: DEXPANTHENOL
  6. MARAVIROC [Suspect]
     Active Substance: MARAVIROC
     Dosage: 300 MG, 1D
     Dates: start: 20111028
  7. SOVALDI [Concomitant]
     Active Substance: SOFOSBUVIR
     Indication: HEPATITIS C
     Dosage: UNK
     Route: 048
     Dates: start: 201512
  8. NORVIR [Concomitant]
     Active Substance: RITONAVIR
     Dosage: 100 MG, QD
  9. LASIX [Concomitant]
     Active Substance: FUROSEMIDE
  10. COVERAM [Concomitant]
     Active Substance: AMLODIPINE\PERINDOPRIL
  11. PREZISTA [Concomitant]
     Active Substance: DARUNAVIR ETHANOLATE
     Dosage: 800 MG, QD
  12. BURINEX [Concomitant]
     Active Substance: BUMETANIDE
     Dosage: 2.5 MG,EVENING
  13. REZOLSTA [Concomitant]
     Active Substance: COBICISTAT\DARUNAVIR ETHANOLATE
     Indication: HIV INFECTION
     Dosage: UNK
     Dates: start: 20160404
  14. DAKLINZA [Concomitant]
     Active Substance: DACLATASVIR
     Indication: HEPATITIS C
     Dosage: UNK
     Route: 048
     Dates: start: 201512
  15. COVERSYL [Concomitant]
     Active Substance: PERINDOPRIL
     Dosage: 10 MG, QD
  16. SODIUM BICARBONATE. [Concomitant]
     Active Substance: SODIUM BICARBONATE
     Dosage: 1 G, QD
  17. HUMALOG [Concomitant]
     Active Substance: INSULIN LISPRO
     Dosage: 14 UNK, MORNING
  18. BURINEX [Concomitant]
     Active Substance: BUMETANIDE
     Dosage: 5 MG, MORNING
  19. D CURE [Concomitant]
     Dosage: 1 UNK, UNK

REACTIONS (3)
  - Generalised oedema [Recovered/Resolved]
  - Rhabdomyolysis [Not Recovered/Not Resolved]
  - Bradycardia [Recovered/Resolved]

NARRATIVE: CASE EVENT DATE: 20160502
